FAERS Safety Report 4736505-3 (Version None)
Quarter: 2005Q3

REPORT INFORMATION
  Report Type: 
  Country: None (occurrence: None)
  Receive Date: 20050804
  Receipt Date: 20050804
  Transmission Date: 20060218
  Serious: Yes (Other)
  Sender: FDA-Public Use
  Company Number: None

PATIENT
  Age: 77 Year
  Sex: Female
  Weight: 70.3075 kg

DRUGS (7)
  1. ZOCOR [Suspect]
     Indication: BLOOD CHOLESTEROL INCREASED
     Dosage: ONCE DAILY
     Dates: start: 20021003, end: 20050401
  2. TOPROL-XL [Concomitant]
  3. PLAVIX [Concomitant]
  4. ASPIRIN [Concomitant]
  5. PEPCID AC [Concomitant]
  6. VITAMIN E [Concomitant]
  7. 50 PLUS VITAMINS [Concomitant]

REACTIONS (3)
  - ALOPECIA [None]
  - MUSCULAR WEAKNESS [None]
  - TREMOR [None]
